FAERS Safety Report 4448663-9 (Version None)
Quarter: 2004Q3

REPORT INFORMATION
  Report Type: 
  Country: None (occurrence: None)
  Receive Date: 20040730
  Receipt Date: 20031028
  Transmission Date: 20050211
  Serious: Yes (Life-Threatening, Hospitalization, Disabling)
  Sender: FDA-Public Use
  Company Number: 2003-10-3205

PATIENT
  Age: 63 Year
  Sex: Male
  Weight: 64.4108 kg

DRUGS (6)
  1. INTRON A [Suspect]
     Indication: MALIGNANT MELANOMA
     Dosage: SEE IMAGE
     Route: 042
     Dates: start: 20030922
  2. RADIATION THERAPY [Concomitant]
  3. SYNTHROID [Concomitant]
  4. LORTAB [Concomitant]
  5. COUMADIN [Concomitant]
  6. COMPAZINE [Concomitant]

REACTIONS (2)
  - PNEUMONIA [None]
  - PSYCHOTIC DISORDER [None]
